FAERS Safety Report 10246644 (Version 2)
Quarter: 2014Q2

REPORT INFORMATION
  Report Type: Report from Study
  Country: ES (occurrence: ES)
  Receive Date: 20140619
  Receipt Date: 20140619
  Transmission Date: 20141212
  Serious: Yes (Other)
  Sender: FDA-Public Use
  Company Number: ES-SHIRE-CQT2-2011-00001

PATIENT
  Age: 34 Year
  Sex: Female

DRUGS (30)
  1. 422 (ANAGRELIDE) [Suspect]
     Indication: ESSENTIAL THROMBOCYTHAEMIA
     Dosage: 2 MG, 1X/DAY:QD
     Route: 048
     Dates: start: 20090415, end: 20090622
  2. 422 (ANAGRELIDE) [Suspect]
     Dosage: 1.5 MG, 1X/DAY:QD
     Route: 048
     Dates: start: 20020909, end: 20021114
  3. 422 (ANAGRELIDE) [Suspect]
     Dosage: 2 MG, 1X/DAY:QD
     Route: 048
     Dates: start: 20021115, end: 20030116
  4. 422 (ANAGRELIDE) [Suspect]
     Dosage: 2.5 MG, 1X/DAY:QD
     Route: 048
     Dates: start: 20030117, end: 20030220
  5. 422 (ANAGRELIDE) [Suspect]
     Dosage: 2 MG, 1X/DAY:QD
     Route: 048
     Dates: start: 20030221, end: 20030612
  6. 422 (ANAGRELIDE) [Suspect]
     Dosage: 1.5 MG, 1X/DAY:QD
     Route: 048
     Dates: start: 20030613, end: 20030904
  7. 422 (ANAGRELIDE) [Suspect]
     Dosage: 2 MG, 1X/DAY:QD
     Route: 048
     Dates: start: 20030905, end: 20040323
  8. 422 (ANAGRELIDE) [Suspect]
     Dosage: 1.5 MG, 1X/DAY:QD
     Route: 048
     Dates: start: 20040324, end: 20040902
  9. 422 (ANAGRELIDE) [Suspect]
     Dosage: 2 MG, 1X/DAY:QD
     Route: 048
     Dates: start: 20040903, end: 20041107
  10. 422 (ANAGRELIDE) [Suspect]
     Dosage: 3 MG, 1X/DAY:QD
     Route: 048
     Dates: start: 20041108, end: 20050213
  11. 422 (ANAGRELIDE) [Suspect]
     Dosage: 2 MG, 1X/DAY:QD
     Route: 048
     Dates: start: 20050214, end: 20050818
  12. 422 (ANAGRELIDE) [Suspect]
     Dosage: 2.5 MG, 1X/DAY:QD
     Route: 048
     Dates: start: 20050819, end: 20051117
  13. 422 (ANAGRELIDE) [Suspect]
     Dosage: 2 MG, 1X/DAY:QD
     Route: 048
     Dates: start: 20051118, end: 20070418
  14. 422 (ANAGRELIDE) [Suspect]
     Dosage: 1.5 MG, 1X/DAY:QD
     Route: 048
     Dates: start: 20080515, end: 20090414
  15. ACETYLSALICYLIC ACID [Suspect]
     Indication: ESSENTIAL THROMBOCYTHAEMIA
     Dosage: 100 MG, 1X/DAY:QD
     Route: 048
     Dates: start: 20101115
  16. ACETYLSALICYLIC ACID [Suspect]
     Dosage: 100 MG, 1X/DAY:QD
     Route: 048
     Dates: start: 20000829, end: 20000929
  17. ACETYLSALICYLIC ACID [Suspect]
     Dosage: 200 MG, 1X/DAY:QD
     Route: 048
     Dates: start: 20000929, end: 20010928
  18. ACETYLSALICYLIC ACID [Suspect]
     Dosage: 100 MG, 1X/DAY:QD
     Route: 048
     Dates: start: 20010929, end: 20040711
  19. ACETYLSALICYLIC ACID [Suspect]
     Dosage: 100 MG, 1X/DAY:QD
     Route: 048
     Dates: start: 20070419, end: 20080113
  20. ACETYLSALICYLIC ACID [Suspect]
     Dosage: 100 MG, 1X/DAY:QD
     Route: 048
     Dates: start: 20080327, end: 201008
  21. HYDROXYUREA [Suspect]
     Indication: ESSENTIAL THROMBOCYTHAEMIA
     Dosage: 500 MG, 1X/DAY:QD
     Route: 048
     Dates: start: 20090924, end: 201008
  22. HYDROXYUREA [Suspect]
     Dosage: 500 MG, 1X/WEEK
     Route: 048
     Dates: start: 20040123, end: 20040510
  23. HYDROXYUREA [Suspect]
     Dosage: 1000 MG, 1X/DAY:QD
     Route: 048
     Dates: start: 20090623, end: 20090715
  24. HYDROXYUREA [Suspect]
     Dosage: 1500 MG, EVERY DAY EXCEPT FRIDAY, SATURDAY AND SUNDAY
     Route: 048
     Dates: start: 20090716, end: 20090806
  25. HYDROXYUREA [Suspect]
     Dosage: 1000 MG, FRIDAY, SATURDAY AND SUNDAY
     Route: 048
     Dates: start: 20090716, end: 20090806
  26. HYDROXYUREA [Suspect]
     Dosage: 1000 MG, EVERY DAY EXCEPT THURSDAY
     Route: 048
     Dates: start: 20090807, end: 20090923
  27. HYDROXYUREA [Suspect]
     Dosage: 1500 MG, EVERY THURSDAY
     Route: 048
     Dates: start: 20090807, end: 20090923
  28. INTERFERON [Suspect]
     Indication: ESSENTIAL THROMBOCYTHAEMIA
     Dosage: 1.5 MILLION IU, THREE TIMES PER WEEK
     Route: 058
     Dates: start: 20110415, end: 20110420
  29. INTERFERON [Suspect]
     Dosage: 3.0 MILLION IU, THREE TIMES PER WEEK
     Route: 058
     Dates: start: 20110422, end: 20110429
  30. ACFOL [Concomitant]
     Indication: FOLATE DEFICIENCY
     Dosage: 500 MG, 1X/DAY:QD
     Route: 048
     Dates: start: 20090924

REACTIONS (3)
  - Abortion spontaneous [Recovered/Resolved]
  - Exposure during pregnancy [Recovered/Resolved]
  - Exposure during pregnancy [Recovered/Resolved]
